FAERS Safety Report 11854838 (Version 2)
Quarter: 2017Q1

REPORT INFORMATION
  Report Type: Spontaneous
  Country: IN (occurrence: IN)
  Receive Date: 20151221
  Receipt Date: 20170105
  Transmission Date: 20170428
  Serious: Yes (Life-Threatening, Other)
  Sender: FDA-Public Use
  Company Number: IN-ALEMBIC PHARMACUETICALS LIMITED-2015SCAL000870

PATIENT

DRUGS (18)
  1. LOSARTAN POTASSIUM. [Interacting]
     Active Substance: LOSARTAN POTASSIUM
     Indication: HYPERTENSION
     Dosage: UNK
  2. INSULIN [Interacting]
     Active Substance: INSULIN NOS
     Indication: TYPE 2 DIABETES MELLITUS
     Dosage: UNK
  3. PRAZOSIN [Interacting]
     Active Substance: PRAZOSIN
     Indication: HYPERTENSION
     Dosage: UNK
  4. SPIRONOLACTONE. [Interacting]
     Active Substance: SPIRONOLACTONE
     Indication: HYPERTENSION
     Dosage: UNK
  5. TELMISARTAN. [Suspect]
     Active Substance: TELMISARTAN
     Indication: HYPERTENSION
     Dosage: UNK
  6. GLIMEPIRIDE. [Interacting]
     Active Substance: GLIMEPIRIDE
     Indication: TYPE 2 DIABETES MELLITUS
     Dosage: UNK
  7. HYDROCHLOROTHIAZIDE. [Interacting]
     Active Substance: HYDROCHLOROTHIAZIDE
     Indication: HYPERTENSION
     Dosage: UNK
  8. PROPANOLOL HYDROCHLORIDE [Interacting]
     Active Substance: PROPRANOLOL HYDROCHLORIDE
     Indication: HYPERTENSION
     Dosage: UNK
  9. GLIPIZIDE. [Interacting]
     Active Substance: GLIPIZIDE
     Indication: TYPE 2 DIABETES MELLITUS
     Dosage: UNK
  10. AMLODIPINE AND VALSARTAN [Interacting]
     Active Substance: AMLODIPINE\VALSARTAN
     Indication: HYPERTENSION
     Dosage: UNK
  11. METOPROLOL TARTRATE. [Interacting]
     Active Substance: METOPROLOL TARTRATE
     Indication: HYPERTENSION
     Dosage: UNK
  12. METFORMIN [Interacting]
     Active Substance: METFORMIN HYDROCHLORIDE
     Indication: TYPE 2 DIABETES MELLITUS
     Dosage: UNK
  13. CAPTOPRIL. [Interacting]
     Active Substance: CAPTOPRIL
     Indication: HYPERTENSION
     Dosage: UNK
  14. ATENOLOL. [Interacting]
     Active Substance: ATENOLOL
     Indication: HYPERTENSION
     Dosage: UNK
  15. CLONIDINE HYDROCHLORIDE. [Interacting]
     Active Substance: CLONIDINE HYDROCHLORIDE
     Indication: HYPERTENSION
     Dosage: UNK
  16. RAMIPRIL. [Interacting]
     Active Substance: RAMIPRIL
     Indication: HYPERTENSION
     Dosage: UNK
  17. CARVEDILOL. [Interacting]
     Active Substance: CARVEDILOL
     Indication: HYPERTENSION
     Dosage: UNK
  18. PIOGLITAZONE. [Interacting]
     Active Substance: PIOGLITAZONE
     Indication: TYPE 2 DIABETES MELLITUS
     Dosage: UNK

REACTIONS (9)
  - Hypoglycaemia [Unknown]
  - Condition aggravated [Unknown]
  - Drug withdrawal syndrome [Unknown]
  - Drug interaction [Unknown]
  - Toxicity to various agents [Unknown]
  - Blood glucose increased [Unknown]
  - Renal impairment [Unknown]
  - Hypotension [Unknown]
  - Bradycardia [Unknown]
